FAERS Safety Report 23177344 (Version 1)
Quarter: 2023Q4

REPORT INFORMATION
  Report Type: Spontaneous
  Country: CN (occurrence: CN)
  Receive Date: 20231113
  Receipt Date: 20231113
  Transmission Date: 20240110
  Serious: Yes (Life-Threatening, Hospitalization, Other)
  Sender: FDA-Public Use
  Company Number: None

PATIENT
  Age: 47 Year
  Sex: Female
  Weight: 57 kg

DRUGS (9)
  1. IFOSFAMIDE [Suspect]
     Active Substance: IFOSFAMIDE
     Indication: Pelvic neoplasm
     Dosage: 2.5G, ONE TIME IN ONE DAY, DILUTED WITH 500 ML OF 0.9% SODIUM CHLORIDE (NS), FIRST CHEMOTHERAPY
     Route: 041
     Dates: start: 20190428, end: 20190502
  2. IFOSFAMIDE [Suspect]
     Active Substance: IFOSFAMIDE
     Indication: Neoplasm malignant
  3. SODIUM CHLORIDE [Suspect]
     Active Substance: SODIUM CHLORIDE
     Indication: Medication dilution
     Dosage: 500 ML, ONE TIME IN ONE DAY USED TO DILUTE 2.5G OF IFOSFAMIDE, FIRST CHEMOTHERAPY
     Route: 041
     Dates: start: 20190428, end: 20190502
  4. SODIUM CHLORIDE [Suspect]
     Active Substance: SODIUM CHLORIDE
     Dosage: 500ML, ONE TIME IN ONE DAY USED TO DILUTE 0.1G OF ETOPOSIDE, FIRST CHEMOTHERAPY
     Route: 041
     Dates: start: 20190428, end: 20190502
  5. DEXTROSE [Suspect]
     Active Substance: DEXTROSE\DEXTROSE MONOHYDRATE
     Indication: Medication dilution
     Dosage: 100 ML, ONE TIME IN ONE DAY USED TO DILUTE 60MG OF PIRARUBICIN, FIRST CHEMOTHERAPY
     Route: 041
     Dates: start: 20190503, end: 20190503
  6. ETOPOSIDE [Suspect]
     Active Substance: ETOPOSIDE
     Indication: Neoplasm malignant
     Dosage: 0.1G, ONE TIME IN ONE DAY, DILUTED WITH 500 ML OF 0.9% SODIUM CHLORIDE, FIRST CHEMOTHERAPY
     Route: 041
     Dates: start: 20190428, end: 20190502
  7. ETOPOSIDE [Suspect]
     Active Substance: ETOPOSIDE
     Indication: Pelvic neoplasm
  8. PIRARUBICIN HYDROCHLORIDE [Suspect]
     Active Substance: PIRARUBICIN HYDROCHLORIDE
     Indication: Pelvic neoplasm
     Dosage: 60 MG, ONE TIME IN ONE DAY, DILUTED WITH 100 ML OF 5% GLUCOSE, FIRST CHEMOTHERAPY
     Route: 041
     Dates: start: 20190503, end: 20190503
  9. PIRARUBICIN HYDROCHLORIDE [Suspect]
     Active Substance: PIRARUBICIN HYDROCHLORIDE
     Indication: Neoplasm malignant

REACTIONS (7)
  - Neoplasm malignant [Unknown]
  - Condition aggravated [Unknown]
  - Myelosuppression [Unknown]
  - Pyrexia [Unknown]
  - Septic shock [Unknown]
  - Heart rate increased [Unknown]
  - Dyspnoea [Unknown]

NARRATIVE: CASE EVENT DATE: 20190504
